FAERS Safety Report 6894412-4 (Version None)
Quarter: 2010Q3

REPORT INFORMATION
  Report Type: 
  Country: None (occurrence: None)
  Receive Date: 20100802
  Receipt Date: 20100722
  Transmission Date: 20110219
  Serious: Yes (Hospitalization)
  Sender: FDA-Public Use
  Company Number: US-ALEXION-A201000867

PATIENT
  Sex: Female

DRUGS (8)
  1. SOLIRIS [Suspect]
     Indication: PAROXYSMAL NOCTURNAL HAEMOGLOBINURIA
     Dosage: UNK Q2W
     Route: 042
     Dates: start: 20071123
  2. AMILORIDE HYDROCHLORIDE [Concomitant]
     Dosage: UNK
  3. FOLIC ACID [Concomitant]
     Dosage: UNK
  4. MAGNESIUM [Concomitant]
     Dosage: UNK
  5. POTASSIUM [Concomitant]
     Dosage: UNK
  6. ALDACTONE [Concomitant]
     Dosage: UNK
  7. AMBIEN [Concomitant]
     Dosage: UNK
  8. ATIVAN [Concomitant]
     Dosage: UNK

REACTIONS (3)
  - DEHYDRATION [None]
  - GASTROINTESTINAL HAEMORRHAGE [None]
  - VIRAL INFECTION [None]
